FAERS Safety Report 7511479-0 (Version None)
Quarter: 2011Q2

REPORT INFORMATION
  Report Type: 
  Country: None (occurrence: None)
  Receive Date: 20110531
  Receipt Date: 20110520
  Transmission Date: 20111010
  Serious: Yes (Hospitalization)
  Sender: FDA-Public Use
  Company Number: US-US-EMD SERONO, INC.-7057440

PATIENT
  Sex: Female
  Weight: 104 kg

DRUGS (5)
  1. REBIF [Suspect]
     Route: 058
     Dates: start: 20100518
  2. TOPAMAX [Concomitant]
     Indication: HEADACHE
     Dates: start: 20100705
  3. REBIF [Suspect]
     Indication: MULTIPLE SCLEROSIS
     Route: 058
     Dates: start: 20100309
  4. SOLU-MEDROL [Suspect]
     Indication: PAIN IN EXTREMITY
  5. ULTRAM [Concomitant]
     Indication: HEADACHE
     Route: 048
     Dates: start: 20100506

REACTIONS (7)
  - HYPERTENSION [None]
  - MUSCULAR WEAKNESS [None]
  - BLOOD GLUCOSE INCREASED [None]
  - TREMOR [None]
  - PAIN IN EXTREMITY [None]
  - PARAESTHESIA [None]
  - HYPOAESTHESIA [None]
